FAERS Safety Report 7075197-8 (Version None)
Quarter: 2010Q4

REPORT INFORMATION
  Report Type: 
  Country: None (occurrence: None)
  Receive Date: 20101030
  Receipt Date: 20100503
  Transmission Date: 20110411
  Serious: No
  Sender: FDA-Public Use
  Company Number: US-WYE-H15003110

PATIENT
  Age: 66 Year
  Sex: Male
  Weight: 68.1 kg

DRUGS (4)
  1. ADVIL PM [Suspect]
     Indication: PAIN
     Dosage: 1 CAPLET  THEN ANOTHER ONE TWO HOURS LATER
     Route: 048
     Dates: start: 20100101, end: 20100101
  2. ADVIL PM [Suspect]
     Indication: INSOMNIA
  3. XANAX [Concomitant]
  4. PLAVIX [Concomitant]

REACTIONS (2)
  - CONDITION AGGRAVATED [None]
  - RESTLESS LEGS SYNDROME [None]
